FAERS Safety Report 5868207-4 (Version None)
Quarter: 2008Q3

REPORT INFORMATION
  Report Type: 
  Country: None (occurrence: None)
  Receive Date: 20080902
  Receipt Date: 20080821
  Transmission Date: 20090109
  Serious: Yes (Other)
  Sender: FDA-Public Use
  Company Number: US-PFIZER INC-2008070418

PATIENT
  Sex: Male
  Weight: 84.09 kg

DRUGS (12)
  1. LYRICA [Suspect]
     Indication: BURNING SENSATION
     Dates: start: 20080401, end: 20080814
  2. LYRICA [Suspect]
     Indication: PARAESTHESIA
  3. HYDROXYCHLOROQUINE [Concomitant]
  4. HYDROXYCHLOROQUINE [Concomitant]
  5. IBUPROFEN [Concomitant]
  6. IBUPROFEN [Concomitant]
  7. ALEVE [Concomitant]
  8. ALEVE [Concomitant]
  9. SAW PALMETTO [Concomitant]
  10. SAW PALMETTO [Concomitant]
  11. FISH OIL [Concomitant]
  12. FISH OIL [Concomitant]

REACTIONS (12)
  - CATARACT [None]
  - CONSTIPATION [None]
  - DISTURBANCE IN ATTENTION [None]
  - DIZZINESS [None]
  - HEADACHE [None]
  - HYPERAESTHESIA [None]
  - INSOMNIA [None]
  - NAUSEA [None]
  - SWELLING [None]
  - VISION BLURRED [None]
  - VISUAL IMPAIRMENT [None]
  - WEIGHT INCREASED [None]
